FAERS Safety Report 4399377-5 (Version None)
Quarter: 2004Q3

REPORT INFORMATION
  Report Type: 
  Country: None (occurrence: None)
  Receive Date: 20040712
  Receipt Date: 20040621
  Transmission Date: 20050211
  Serious: Yes (Other)
  Sender: FDA-Public Use
  Company Number: USA040568383

PATIENT
  Age: 30 Year
  Sex: Female

DRUGS (3)
  1. ZYPREXA [Suspect]
     Indication: BIPOLAR DISORDER
     Dosage: 10 MG/1 DAY
     Route: 048
     Dates: start: 20040301
  2. PAXIL CR [Concomitant]
  3. XANAX [Concomitant]

REACTIONS (4)
  - GALACTORRHOEA [None]
  - MENSTRUATION IRREGULAR [None]
  - UTERINE HAEMORRHAGE [None]
  - WEIGHT INCREASED [None]
